FAERS Safety Report 17252777 (Version 1)
Quarter: 2020Q1

REPORT INFORMATION
  Report Type: Spontaneous
  Country: US (occurrence: US)
  Receive Date: 20200109
  Receipt Date: 20200109
  Transmission Date: 20200409
  Serious: Yes (Hospitalization)
  Sender: FDA-Public Use
  Company Number: US-VERTEX PHARMACEUTICALS-2020-000254

PATIENT
  Age: 35 Year
  Sex: Male

DRUGS (24)
  1. AMLODIPINE [Concomitant]
     Active Substance: AMLODIPINE BESYLATE
  2. GABAPENTIN. [Concomitant]
     Active Substance: GABAPENTIN
  3. GLUCAGON. [Concomitant]
     Active Substance: GLUCAGON
  4. ZYVOX [Concomitant]
     Active Substance: LINEZOLID
  5. CIPROFLOX [CIPROFLOXACIN HYDROCHLORIDE] [Concomitant]
     Active Substance: CIPROFLOXACIN HYDROCHLORIDE
  6. SODIUM CHLORIDE. [Concomitant]
     Active Substance: SODIUM CHLORIDE
  7. TOBI PODHALER [Concomitant]
     Active Substance: TOBRAMYCIN
  8. SYMDEKO [Suspect]
     Active Substance: IVACAFTOR\TEZACAFTOR
     Indication: CYSTIC FIBROSIS
     Dosage: 100MG TEZACAFTOR/150MG IVACAFTOR AM, 150MG IVACAFTOR PM
     Route: 048
     Dates: start: 20191224, end: 202001
  9. HUMALOG JUNIOR KWIKPEN [Concomitant]
     Active Substance: INSULIN LISPRO
  10. LINEZOLID. [Concomitant]
     Active Substance: LINEZOLID
  11. MUPIROCIN. [Concomitant]
     Active Substance: MUPIROCIN
  12. PROAIR HFA [Concomitant]
     Active Substance: ALBUTEROL SULFATE
  13. APAP [Concomitant]
     Active Substance: ACETAMINOPHEN
  14. HYDROCODEINE [Concomitant]
     Active Substance: DIHYDROCODEINE PHOSPHATE
  15. PROMETAZIN [Concomitant]
     Active Substance: PROMETHAZINE HYDROCHLORIDE
  16. CAYSTON [Concomitant]
     Active Substance: AZTREONAM
  17. HYDROXYZINE [Concomitant]
     Active Substance: HYDROXYZINE HYDROCHLORIDE
  18. VITAMIN D2 [Concomitant]
     Active Substance: ERGOCALCIFEROL
  19. DOXYCYCLINE. [Concomitant]
     Active Substance: DOXYCYCLINE
  20. PULMOZYME [Concomitant]
     Active Substance: DORNASE ALFA
  21. TRAMADOL. [Concomitant]
     Active Substance: TRAMADOL
  22. ZOLPIDEM [Concomitant]
     Active Substance: ZOLPIDEM TARTRATE
  23. LANTUS [Concomitant]
     Active Substance: INSULIN GLARGINE
  24. SERTRALINE [Concomitant]
     Active Substance: SERTRALINE HYDROCHLORIDE

REACTIONS (1)
  - Pneumonia [Unknown]

NARRATIVE: CASE EVENT DATE: 201912
